FAERS Safety Report 14967875 (Version 2)
Quarter: 2018Q3

REPORT INFORMATION
  Report Type: Spontaneous
  Country: US (occurrence: US)
  Receive Date: 20180604
  Receipt Date: 20180829
  Transmission Date: 20181010
  Serious: No
  Sender: FDA-Public Use
  Company Number: US-PFIZER INC-2018224781

PATIENT
  Age: 54 Year
  Sex: Male

DRUGS (2)
  1. NICOTROL [Suspect]
     Active Substance: NICOTINE
     Indication: SMOKING CESSATION THERAPY
     Dosage: UNK, AS NEEDED(6 TO 16 CARTRIDGES PER DAY)
     Route: 045
     Dates: start: 201711
  2. NICOTROL [Suspect]
     Active Substance: NICOTINE
     Dosage: UNK, AS NEEDED
     Route: 055

REACTIONS (3)
  - Drug intolerance [Unknown]
  - Dysgeusia [Unknown]
  - Drug effect incomplete [Unknown]
